FAERS Safety Report 24252910 (Version 1)
Quarter: 2024Q3

REPORT INFORMATION
  Report Type: Spontaneous
  Country: IT (occurrence: IT)
  Receive Date: 20240827
  Receipt Date: 20240827
  Transmission Date: 20241016
  Serious: Yes (Hospitalization)
  Sender: AUROBINDO
  Company Number: IT-TEVA-VS-3230407

PATIENT
  Age: 46 Year
  Sex: Female
  Weight: 59 kg

DRUGS (4)
  1. OXALIPLATIN [Suspect]
     Active Substance: OXALIPLATIN
     Indication: Metastatic gastric cancer
     Dosage: 85 MILLIGRAM/SQ. METER (2 WEEKLY)
     Route: 042
     Dates: start: 20240418
  2. LEVOLEUCOVORIN [Suspect]
     Active Substance: LEVOLEUCOVORIN
     Indication: Metastatic gastric cancer
     Dosage: 200 MILLIGRAM/SQ. METER (2 WEEKLY)
     Route: 042
     Dates: start: 20240418
  3. FLUOROURACIL [Suspect]
     Active Substance: FLUOROURACIL
     Indication: Metastatic gastric cancer
     Dosage: UNK (400 MG (BOLUS)+2400 MG/M2 (ELASTOMER), EVERY 2 WEEKS)
     Route: 042
     Dates: start: 20240418
  4. NIVOLUMAB [Suspect]
     Active Substance: NIVOLUMAB
     Indication: Metastatic gastric cancer
     Dosage: 240 MILLIGRAM (2 WEEKLY)
     Route: 042
     Dates: start: 20240418

REACTIONS (4)
  - Hypocalcaemia [Recovered/Resolved]
  - Urine output decreased [Recovered/Resolved]
  - Pyrexia [Recovered/Resolved]
  - Hypotension [Recovered/Resolved]

NARRATIVE: CASE EVENT DATE: 20240614
